FAERS Safety Report 8027315-2 (Version None)
Quarter: 2012Q1

REPORT INFORMATION
  Report Type: 
  Country: None (occurrence: None)
  Receive Date: 20120106
  Receipt Date: 20120104
  Transmission Date: 20120608
  Serious: Yes (Other)
  Sender: FDA-Public Use
  Company Number: US-BRISTOL-MYERS SQUIBB COMPANY-16329591

PATIENT
  Age: 47 Year
  Sex: Female

DRUGS (1)
  1. ORENCIA [Suspect]
     Dosage: HER LAST INFUSION DATE WAS AUGUST 2011 RESTARTED ORENCIA SUBQ ON 16DEC2011.
     Dates: start: 20110301

REACTIONS (1)
  - ARTHROPATHY [None]
